FAERS Safety Report 5370310-2 (Version None)
Quarter: 2007Q2

REPORT INFORMATION
  Report Type: 
  Country: None (occurrence: None)
  Receive Date: 20070625
  Receipt Date: 20070625
  Transmission Date: 20071010
  Serious: Yes (Other)
  Sender: FDA-Public Use
  Company Number: None

PATIENT
  Age: 36 Year
  Sex: Female
  Weight: 54.4316 kg

DRUGS (1)
  1. CHANTIX [Suspect]
     Indication: SMOKING CESSATION THERAPY
     Dosage: 0.5 MG QD X 3 DAYS THEN BID PO 1 MG BID PO
     Route: 048
     Dates: start: 20070621, end: 20070624

REACTIONS (2)
  - DISORIENTATION [None]
  - SENSORY LOSS [None]
